FAERS Safety Report 5081278-0 (Version None)
Quarter: 2006Q3

REPORT INFORMATION
  Report Type: 
  Country: None (occurrence: None)
  Receive Date: 20060816
  Receipt Date: 20050609
  Transmission Date: 20061208
  Serious: Yes (Hospitalization, Other)
  Sender: FDA-Public Use
  Company Number: 2005UW08993

PATIENT
  Age: 25382 Day
  Sex: Female

DRUGS (6)
  1. CRESTOR [Suspect]
     Indication: DYSLIPIDAEMIA
     Route: 048
     Dates: start: 20020601, end: 20030817
  2. RELAFEN [Suspect]
  3. METHADONE HCL [Concomitant]
     Indication: PAIN
  4. ATENOLOL [Concomitant]
     Indication: HYPERTENSION
  5. DYNACIRC [Concomitant]
     Indication: HYPERTENSION
  6. AMBIEN [Concomitant]
     Indication: SLEEP APNOEA SYNDROME

REACTIONS (9)
  - DRUG INTOLERANCE [None]
  - DYSPHAGIA [None]
  - FLUID OVERLOAD [None]
  - HEPATIC FAILURE [None]
  - HYPOXIA [None]
  - NEPHRITIS INTERSTITIAL [None]
  - PLEURAL EFFUSION [None]
  - RENAL FAILURE ACUTE [None]
  - RHABDOMYOLYSIS [None]
